FAERS Safety Report 9701144 (Version 2)
Quarter: 2015Q3

REPORT INFORMATION
  Report Type: Spontaneous
  Country: US (occurrence: US)
  Receive Date: 20131121
  Receipt Date: 20150803
  Transmission Date: 20151125
  Serious: No
  Sender: FDA-Public Use
  Company Number: US-GILEAD-2008-0015766

PATIENT
  Sex: Female

DRUGS (7)
  1. SYNTHROID [Concomitant]
     Active Substance: LEVOTHYROXINE SODIUM
  2. LETAIRIS [Suspect]
     Active Substance: AMBRISENTAN
  3. IRON [Concomitant]
     Active Substance: IRON
  4. ATENOLOL. [Concomitant]
     Active Substance: ATENOLOL
  5. MULTIVITAMIN [Concomitant]
     Active Substance: VITAMINS
  6. ACIPHEX [Concomitant]
     Active Substance: RABEPRAZOLE SODIUM
  7. ASPIRIN. [Concomitant]
     Active Substance: ASPIRIN

REACTIONS (1)
  - Fluid retention [Recovered/Resolved]
